FAERS Safety Report 18903383 (Version 1)
Quarter: 2021Q1

REPORT INFORMATION
  Report Type: Spontaneous
  Country: US (occurrence: US)
  Receive Date: 20210216
  Receipt Date: 20210216
  Transmission Date: 20210420
  Serious: No
  Sender: FDA-Public Use
  Company Number: None

PATIENT
  Age: 75 Year
  Sex: Female
  Weight: 52.62 kg

DRUGS (10)
  1. VITAMIN D3 COMPLETE [Concomitant]
  2. FUROSEMIDE. [Concomitant]
     Active Substance: FUROSEMIDE
  3. DILANTIN [Concomitant]
     Active Substance: PHENYTOIN
  4. PHENOBARBITAL. [Concomitant]
     Active Substance: PHENOBARBITAL
  5. EXEMESTANE. [Concomitant]
     Active Substance: EXEMESTANE
  6. CAPECITABINE. [Suspect]
     Active Substance: CAPECITABINE
     Route: 048
  7. PROCHLORPERAZINE MALEATE. [Concomitant]
     Active Substance: PROCHLORPERAZINE MALEATE
  8. CORAL CALCIUM [Concomitant]
     Active Substance: DIETARY SUPPLEMENT
  9. MULTIVITAMINS [Concomitant]
     Active Substance: VITAMINS
  10. VITAMIN C [Concomitant]
     Active Substance: ASCORBIC ACID

REACTIONS (4)
  - Fatigue [None]
  - Abdominal pain upper [None]
  - Paraesthesia [None]
  - Constipation [None]

NARRATIVE: CASE EVENT DATE: 20210216
